FAERS Safety Report 10034013 (Version 3)
Quarter: 2014Q3

REPORT INFORMATION
  Report Type: Spontaneous
  Country: IT (occurrence: None)
  Receive Date: 20140320
  Receipt Date: 20140723
  Transmission Date: 20150326
  Serious: Yes (Death, Life-Threatening, Hospitalization)
  Sender: FDA-Public Use
  Company Number: 2014MPI00123

PATIENT
  Age: 22 Year
  Sex: Male
  Weight: 70 kg

DRUGS (10)
  1. MORPHINE HYDROCHLORIDE (MORPHINE HYDROCHLORIDE) [Concomitant]
  2. DENIBAN (AMISULPRIDE) [Concomitant]
     Active Substance: AMISULPRIDE
  3. KYTRIL (GRANISETRON HYDDOCHLORIDE) [Concomitant]
  4. ANTRA (OMEPRAZOLE MAGNESIUM) [Concomitant]
  5. AMISULPRIDE (AMISULPRIDE) [Concomitant]
     Active Substance: AMISULPRIDE
  6. AMIODARONE (AMIODARONE HYDROCHLORIDE) [Concomitant]
  7. LYRICA [Concomitant]
     Active Substance: PREGABALIN
  8. DIAZEPAM (DDIAZEPAM) [Concomitant]
  9. ADCETRIS [Suspect]
     Active Substance: BRENTUXIMAB VEDOTIN
     Indication: ANAPLASTIC LARGE CELL LYMPHOMA T- AND NULL-CELL TYPES REFRACTORY
     Route: 042
     Dates: start: 20140115, end: 20140115
  10. TAZOCIN (PIPERACILLIN SODIUM, TAZOBACTAM SODIUM) [Concomitant]

REACTIONS (11)
  - Toxic epidermal necrolysis [None]
  - Renal failure [None]
  - Subileus [None]
  - Conjunctivitis [None]
  - Stomatitis [None]
  - Haemodialysis [None]
  - Haemoglobin decreased [None]
  - Anaplastic large-cell lymphoma [None]
  - Haemoglobin [None]
  - Disease progression [None]
  - Malignant neoplasm progression [None]

NARRATIVE: CASE EVENT DATE: 201401
